FAERS Safety Report 9013922 (Version 2)
Quarter: 2013Q1

REPORT INFORMATION
  Report Type: Spontaneous
  Country: US (occurrence: US)
  Receive Date: 20130115
  Receipt Date: 20130308
  Transmission Date: 20140127
  Serious: Yes (Other)
  Sender: FDA-Public Use
  Company Number: US-PERRIGO-13US000097

PATIENT
  Age: 39 Year
  Sex: Male
  Weight: 99.77 kg

DRUGS (1)
  1. OXYMETAZOLINE HYDROCHLORIDE [Suspect]
     Indication: NASAL CONGESTION
     Dosage: 2-3 SPRAYS, QD, PRN
     Route: 045
     Dates: start: 2011, end: 201211

REACTIONS (2)
  - Neoplasm malignant [Unknown]
  - Incorrect drug administration duration [Unknown]
